FAERS Safety Report 10185076 (Version 2)
Quarter: 2014Q2

REPORT INFORMATION
  Report Type: Report from Study
  Country: DE (occurrence: None)
  Receive Date: 20140519
  Receipt Date: 20140620
  Transmission Date: 20141212
  Serious: Yes (Hospitalization)
  Sender: FDA-Public Use
  Company Number: 2014DE003045

PATIENT
  Age: 75 Year
  Sex: Female
  Weight: 62 kg

DRUGS (13)
  1. PONATINIB (AP23534) TABLET [Suspect]
     Indication: CHRONIC MYELOID LEUKAEMIA
     Route: 048
     Dates: start: 20110502
  2. RAMIPRIL (RAMIPRIL) [Concomitant]
  3. HYDROCHLOROTHIAZID [Concomitant]
  4. BISOPROLOL (BISOPROLOL) [Concomitant]
  5. KALINOR-BRAUSETABLETTEN (POTASSIUM CARBONATE, POTASSIUM CITRATE) [Concomitant]
  6. FUROSEMID (FUROSEMID) [Concomitant]
  7. ALLOPURINOL (ALLOPURINOL) [Concomitant]
  8. VOLTAREN (DICLOFENAC) [Concomitant]
  9. OMEPRAZOL (OMEPRAZOLE) [Concomitant]
  10. CERTOPARIN (CERTOPARIN SODIUM) [Concomitant]
  11. IBUPROFEN (IBUPROFEN) [Concomitant]
  12. DICLOFENAC (DICLOFENAC) [Concomitant]
  13. ASS (ACETYLSALICYLIC ACID) [Concomitant]

REACTIONS (8)
  - Osteoarthritis [None]
  - Platelet count decreased [None]
  - Blood urea increased [None]
  - Blood creatinine increased [None]
  - Glomerular filtration rate decreased [None]
  - Gamma-glutamyltransferase increased [None]
  - Blood lactate dehydrogenase increased [None]
  - Osteoarthritis [None]
